FAERS Safety Report 12818030 (Version 1)
Quarter: 2016Q4

REPORT INFORMATION
  Report Type: Spontaneous
  Country: US (occurrence: US)
  Receive Date: 20161006
  Receipt Date: 20161006
  Transmission Date: 20170207
  Serious: Yes (Disabling, Other)
  Sender: FDA-Public Use
  Company Number: None

PATIENT
  Age: 66 Year
  Sex: Male
  Weight: 86.18 kg

DRUGS (14)
  1. AMLODIPINE BESYLATE. [Concomitant]
     Active Substance: AMLODIPINE BESYLATE
  2. TRAZODONE [Concomitant]
     Active Substance: TRAZODONE HYDROCHLORIDE
  3. METOPROLOL. [Concomitant]
     Active Substance: METOPROLOL
  4. TEMAZEPAM. [Concomitant]
     Active Substance: TEMAZEPAM
  5. MELATONIN [Concomitant]
     Active Substance: MELATONIN
  6. VIAGRA [Suspect]
     Active Substance: SILDENAFIL CITRATE
     Indication: OESOPHAGEAL SPASM
     Dosage: SILDENAFIL CITRATE (VIAGRA) 1/2 OF 50MG TAB 2 X A DAY PO
     Route: 048
     Dates: start: 20160606, end: 20160808
  7. ASPIRIN. [Concomitant]
     Active Substance: ASPIRIN
  8. LISINOPRIL. [Concomitant]
     Active Substance: LISINOPRIL
  9. ABILIFY [Concomitant]
     Active Substance: ARIPIPRAZOLE
  10. VISTARIL [Concomitant]
     Active Substance: HYDROXYZINE PAMOATE
  11. TRAMADOL. [Concomitant]
     Active Substance: TRAMADOL
  12. OLANZAPINE. [Concomitant]
     Active Substance: OLANZAPINE
  13. DICYCLOMINE HCL [Concomitant]
     Active Substance: DICYCLOMINE HYDROCHLORIDE
  14. CLONAZEPAM. [Concomitant]
     Active Substance: CLONAZEPAM

REACTIONS (3)
  - Acquired hydrocele [None]
  - Scrotal swelling [None]
  - Testicular disorder [None]

NARRATIVE: CASE EVENT DATE: 20160808
